FAERS Safety Report 26121702 (Version 1)
Quarter: 2025Q4

REPORT INFORMATION
  Report Type: Spontaneous
  Country: US (occurrence: US)
  Receive Date: 20251204
  Receipt Date: 20251204
  Transmission Date: 20260117
  Serious: No
  Sender: MALLINCKRODT
  Company Number: US-MALLINCKRODT-MNK202507636

PATIENT
  Sex: Male

DRUGS (6)
  1. CORTICOTROPIN [Suspect]
     Active Substance: CORTICOTROPIN
     Indication: Type 2 diabetes mellitus
     Dosage: 80 UNITS
     Route: 058
  2. CORTICOTROPIN [Suspect]
     Active Substance: CORTICOTROPIN
     Indication: Corneal oedema
  3. CORTICOTROPIN [Suspect]
     Active Substance: CORTICOTROPIN
     Indication: Keratitis
  4. OFLOXACIN [Concomitant]
     Active Substance: OFLOXACIN
     Dosage: UNKNOWN
  5. PREDNISOLONE [Concomitant]
     Active Substance: PREDNISOLONE
     Dosage: UNKNOWN
  6. NEPAFENAC [Concomitant]
     Active Substance: NEPAFENAC
     Dosage: UNKNOWN

REACTIONS (2)
  - Fall [Unknown]
  - Injection site pain [Unknown]
